FAERS Safety Report 7524405-5 (Version None)
Quarter: 2011Q2

REPORT INFORMATION
  Report Type: 
  Country: None (occurrence: None)
  Receive Date: 20110606
  Receipt Date: 20110523
  Transmission Date: 20111010
  Serious: Yes (Other)
  Sender: FDA-Public Use
  Company Number: PHHY2011DE39742

PATIENT
  Sex: Female
  Weight: 75 kg

DRUGS (9)
  1. ALISKIREN [Suspect]
     Indication: HYPERTENSION
     Dosage: 150 MG, UNK
     Route: 048
     Dates: start: 20081119
  2. CALCIUM ANTAGONIST [Concomitant]
     Dosage: UNK
     Dates: end: 20101101
  3. STATIN [Concomitant]
     Dosage: UNK
     Dates: end: 20101108
  4. DIURETICS [Concomitant]
  5. NSAID'S [Concomitant]
     Indication: DIABETES MELLITUS
  6. ANGIOTENSIN II ANTAGONISTS [Concomitant]
     Dosage: UNK
     Dates: end: 20101101
  7. ALPHA-ADRENOCEPTOR BLOCKING AGENTS [Concomitant]
     Dosage: UNK
     Dates: end: 20101101
  8. ORAL ANTIDIABETICS [Concomitant]
     Indication: DIABETES MELLITUS
  9. BETA BLOCKING AGENTS [Concomitant]
     Dosage: UNK
     Dates: end: 20101101

REACTIONS (3)
  - EXTRANODAL MARGINAL ZONE B-CELL LYMPHOMA (MALT TYPE) [None]
  - NEOPLASM RECURRENCE [None]
  - ANGINA PECTORIS [None]
